FAERS Safety Report 23147298 (Version 1)
Quarter: 2023Q4

REPORT INFORMATION
  Report Type: Spontaneous
  Country: FR (occurrence: FR)
  Receive Date: 20231106
  Receipt Date: 20231106
  Transmission Date: 20240110
  Serious: Yes (Other)
  Sender: FDA-Public Use
  Company Number: FR-CELLTRION INC.-2023FR021246

PATIENT

DRUGS (1)
  1. INFLIXIMAB [Suspect]
     Active Substance: INFLIXIMAB
     Indication: Crohn^s disease
     Dosage: 120 MILLIGRAM; PATIENT SWITCHED TO REMSIMA 120MG SC PEN ABOUT 6 MONTHS AGO
     Route: 058

REACTIONS (1)
  - Eye pain [Not Recovered/Not Resolved]
